FAERS Safety Report 7518700-3 (Version None)
Quarter: 2011Q2

REPORT INFORMATION
  Report Type: 
  Country: None (occurrence: None)
  Receive Date: 20110602
  Receipt Date: 20110520
  Transmission Date: 20111010
  Serious: Yes (Hospitalization, Other)
  Sender: FDA-Public Use
  Company Number: PHHY2011ES43654

PATIENT
  Age: 29 Year
  Sex: Male

DRUGS (8)
  1. PROGRAF [Concomitant]
     Indication: RENAL TRANSPLANT
     Dosage: 540 MG, UNK
     Route: 042
     Dates: start: 20100501, end: 20100821
  2. VALCYTE [Concomitant]
     Indication: RENAL TRANSPLANT
     Dosage: 225 MG, QD
     Route: 048
     Dates: start: 20100604, end: 20100822
  3. MYFORTIC [Suspect]
     Indication: RENAL TRANSPLANT
     Dosage: 540 MG, UNK
     Route: 042
     Dates: start: 20100501, end: 20100821
  4. OMEPRAZOLE [Concomitant]
  5. SEPTRA [Concomitant]
     Indication: RENAL TRANSPLANT
     Dosage: UNK
     Route: 048
     Dates: start: 20100604, end: 20101009
  6. LEDERFOLIN [Concomitant]
  7. CARDURA [Concomitant]
  8. PREDNISONE [Concomitant]
     Indication: RENAL TRANSPLANT
     Dosage: 5 MG, QD
     Route: 048
     Dates: start: 20100501

REACTIONS (7)
  - BLOOD CREATININE INCREASED [None]
  - WHITE BLOOD CELL COUNT DECREASED [None]
  - COMPLICATIONS OF TRANSPLANT SURGERY [None]
  - PYREXIA [None]
  - HEADACHE [None]
  - AGRANULOCYTOSIS [None]
  - NEUTROPHIL COUNT DECREASED [None]
